FAERS Safety Report 4284699-9 (Version None)
Quarter: 2004Q1

REPORT INFORMATION
  Report Type: 
  Country: None (occurrence: None)
  Receive Date: 20040130
  Receipt Date: 20040126
  Transmission Date: 20041129
  Serious: Yes (Death, Hospitalization)
  Sender: FDA-Public Use
  Company Number: STA-AE-04-MTX-025

PATIENT
  Age: 74 Year
  Sex: Male

DRUGS (8)
  1. RHEUMATREX [Suspect]
     Indication: RHEUMATOID ARTHRITIS
     Dosage: 4 MG 1 X PER 1 WK, ORAL
     Route: 048
     Dates: start: 20010628, end: 20030601
  2. PREDNISONE [Suspect]
     Indication: RHEUMATOID ARTHRITIS
     Dosage: 7 MG 1 X PER 1 DAY, ORAL
     Route: 048
     Dates: start: 20010101, end: 20030622
  3. RIMATIL (BUCILLAMINE) [Suspect]
     Indication: RHEUMATOID ARTHRITIS
     Dosage: 100 MG 1 X PER 1 DAY, ORAL
     Route: 048
     Dates: start: 20010401, end: 20030622
  4. DEPAS (ELIZOLAM) [Concomitant]
  5. OPALMON (LIMAPROST) [Concomitant]
  6. VOLATREN-SLOW RELEASE (DICLOFENAC SODIUM) [Concomitant]
  7. CYTOTEC (MISOPROTOL) [Concomitant]
  8. CEFACLOR [Concomitant]

REACTIONS (18)
  - ANAEMIA [None]
  - ANOREXIA [None]
  - BACK PAIN [None]
  - DISEASE PROGRESSION [None]
  - GENERALISED OEDEMA [None]
  - HYPOXIA [None]
  - INCREASED VISCOSITY OF BRONCHIAL SECRETION [None]
  - JAUNDICE [None]
  - MALAISE [None]
  - MUSCULOSKELETAL PAIN [None]
  - PAIN [None]
  - PANCYTOPENIA [None]
  - PNEUMONIA [None]
  - PRODUCTIVE COUGH [None]
  - SKIN ULCER [None]
  - SYSTEMIC INFLAMMATORY RESPONSE SYNDROME [None]
  - TREATMENT NONCOMPLIANCE [None]
  - VOMITING [None]
